FAERS Safety Report 5923106-4 (Version None)
Quarter: 2008Q4

REPORT INFORMATION
  Report Type: 
  Country: None (occurrence: None)
  Receive Date: 20081018
  Receipt Date: 20081009
  Transmission Date: 20090506
  Serious: Yes (Other)
  Sender: FDA-Public Use
  Company Number: US-PFIZER INC-2008085556

PATIENT
  Sex: Female
  Weight: 77.272 kg

DRUGS (4)
  1. LIPITOR [Suspect]
     Indication: BLOOD CHOLESTEROL INCREASED
  2. CLONIDINE [Concomitant]
  3. NORVASC [Concomitant]
  4. INDERAL LA [Concomitant]

REACTIONS (6)
  - BLOOD TEST ABNORMAL [None]
  - CHROMATURIA [None]
  - FAECES PALE [None]
  - FOOT OPERATION [None]
  - HEPATIC ENZYME INCREASED [None]
  - JAUNDICE [None]
